FAERS Safety Report 5774129-X (Version None)
Quarter: 2008Q2

REPORT INFORMATION
  Report Type: 
  Country: None (occurrence: None)
  Receive Date: 20080616
  Receipt Date: 20080610
  Transmission Date: 20081010
  Serious: Yes (Other)
  Sender: FDA-Public Use
  Company Number: IE-ASTRAZENECA-2008GB00798

PATIENT
  Sex: Male

DRUGS (7)
  1. CRESTOR [Suspect]
     Dosage: 10 MG
     Route: 048
     Dates: start: 20061101, end: 20071101
  2. TRITACE [Concomitant]
     Dosage: 10
     Route: 048
  3. EMCOR [Concomitant]
     Dosage: 5
  4. ASPIRIN [Concomitant]
     Dosage: 75
  5. PLAVIX [Concomitant]
     Dosage: 75
  6. LOPRAZ [Concomitant]
  7. TIPURIC [Concomitant]

REACTIONS (3)
  - BLOOD CREATINE PHOSPHOKINASE INCREASED [None]
  - MUSCLE SPASMS [None]
  - PAIN [None]
